FAERS Safety Report 9474810 (Version 1)
Quarter: 2013Q3

REPORT INFORMATION
  Report Type: Spontaneous
  Country: ES (occurrence: ES)
  Receive Date: 20130823
  Receipt Date: 20130823
  Transmission Date: 20140515
  Serious: Yes (Other)
  Sender: FDA-Public Use
  Company Number: PHHY2013ES088436

PATIENT
  Age: 78 Year
  Sex: Female

DRUGS (1)
  1. LEFLUNOMIDE [Suspect]
     Indication: RHEUMATOID ARTHRITIS
     Dates: start: 200908, end: 201105

REACTIONS (7)
  - Keratoacanthoma [Recovered/Resolved]
  - Squamous cell carcinoma [Recovered/Resolved]
  - Neoplasm skin [Recovered/Resolved]
  - Skin lesion [Recovered/Resolved]
  - Skin mass [Recovered/Resolved]
  - Actinic keratosis [Recovered/Resolved]
  - Skin ulcer [Recovered/Resolved]
